FAERS Safety Report 11594192 (Version 1)
Quarter: 2015Q4

REPORT INFORMATION
  Report Type: Spontaneous
  Country: IL (occurrence: IL)
  Receive Date: 20151005
  Receipt Date: 20151005
  Transmission Date: 20160304
  Serious: Yes (Hospitalization)
  Sender: FDA-Public Use
  Company Number: IL-MYLANLABS-2015M1033450

PATIENT

DRUGS (1)
  1. THIAMAZOLE [Suspect]
     Active Substance: METHIMAZOLE
     Indication: BASEDOW^S DISEASE
     Route: 065

REACTIONS (2)
  - Ascites [Unknown]
  - Hepatitis [Unknown]
